FAERS Safety Report 5228522-4 (Version None)
Quarter: 2007Q1

REPORT INFORMATION
  Report Type: 
  Country: None (occurrence: None)
  Receive Date: 20070205
  Receipt Date: 20070126
  Transmission Date: 20070707
  Serious: Yes (Hospitalization)
  Sender: FDA-Public Use
  Company Number: US-AVENTIS-200710599US

PATIENT
  Age: 83 Year
  Sex: Female

DRUGS (12)
  1. LOVENOX [Suspect]
     Dates: start: 20061211, end: 20061223
  2. LOVENOX [Suspect]
     Dates: start: 20061211, end: 20061223
  3. COUMADIN [Concomitant]
     Dosage: DOSE: UNK
  4. ALLOPURINOL SODIUM [Concomitant]
     Dosage: DOSE: UNK
  5. COZAAR [Concomitant]
     Dosage: DOSE: UNK
  6. DIGOXIN [Concomitant]
     Dosage: DOSE: UNK
  7. FUROSEMIDE [Concomitant]
     Dosage: DOSE: UNK
  8. POTASSIUM CHLORIDE [Concomitant]
     Dosage: DOSE: UNK
  9. OCUVITE                            /01053801/ [Concomitant]
     Dosage: DOSE: UNK
  10. DARVOCET-N 100 [Concomitant]
     Dosage: DOSE: UNK
  11. SYNTHROID [Concomitant]
     Dosage: DOSE: UNK
  12. METOPROLOL TARTRATE [Concomitant]
     Dosage: DOSE: UNK

REACTIONS (4)
  - ECCHYMOSIS [None]
  - PAIN IN EXTREMITY [None]
  - SKIN NECROSIS [None]
  - SUBCUTANEOUS HAEMATOMA [None]
